FAERS Safety Report 10477905 (Version 1)
Quarter: 2014Q3

REPORT INFORMATION
  Report Type: Spontaneous
  Country: DE (occurrence: DE)
  Receive Date: 20140926
  Receipt Date: 20140926
  Transmission Date: 20150326
  Serious: Yes (Other)
  Sender: FDA-Public Use
  Company Number: DE-WATSON-2014-20447

PATIENT
  Age: 38 Year
  Sex: Female
  Weight: 46 kg

DRUGS (6)
  1. ZELDOX [Suspect]
     Active Substance: ZIPRASIDONE
     Indication: SCHIZOPHRENIA
     Dosage: 60 MG, DAILY
     Route: 048
     Dates: start: 20130127, end: 20130921
  2. AMITRIPTYLIN NEURAXPHARM [Suspect]
     Active Substance: AMITRIPTYLINE
     Indication: DEPRESSION
     Dosage: 100 MG, DAILY
     Route: 048
  3. VENLAFAXINE (UNKNOWN) [Suspect]
     Active Substance: VENLAFAXINE HYDROCHLORIDE
     Indication: EATING DISORDER
     Dosage: 75 MG, BID
     Route: 048
     Dates: start: 20130127, end: 20130921
  4. VENLAFAXIN DURA [Suspect]
     Active Substance: VENLAFAXINE HYDROCHLORIDE
     Indication: EATING DISORDER
     Dosage: 75 MG, DAILY
     Route: 048
     Dates: start: 20130127, end: 20130921
  5. AMITRIPTYLINE [Suspect]
     Active Substance: AMITRIPTYLINE
     Indication: DEPRESSION
     Dosage: 75 MG, DAILY
     Route: 048
     Dates: start: 20130127, end: 20130921
  6. DOXEPIN (WATSON LABORATORIES) [Suspect]
     Active Substance: DOXEPIN
     Indication: ANXIETY DISORDER
     Dosage: 50 MG, DAILY
     Route: 048
     Dates: end: 201308

REACTIONS (3)
  - Foetal monitoring abnormal [Unknown]
  - Cervical incompetence [Unknown]
  - Premature labour [Unknown]
